FAERS Safety Report 4319998-5 (Version None)
Quarter: 2004Q1

REPORT INFORMATION
  Report Type: 
  Country: None (occurrence: None)
  Receive Date: 20040319
  Receipt Date: 20040310
  Transmission Date: 20041129
  Serious: Yes (Hospitalization)
  Sender: FDA-Public Use
  Company Number: WAES 0403FRA00035

PATIENT
  Age: 48 Year
  Sex: Male

DRUGS (5)
  1. FOSAMAX [Suspect]
     Indication: OSTEOPOROSIS
     Route: 048
     Dates: start: 20030101, end: 20040101
  2. FOSAMAX [Suspect]
     Route: 048
     Dates: start: 20040202, end: 20040202
  3. HYDROCORTISONE [Concomitant]
  4. OMEPRAZOLE [Concomitant]
  5. TRIMEBUTINE MALEATE [Concomitant]

REACTIONS (12)
  - ABDOMINAL PAIN [None]
  - ASTHENIA [None]
  - C-REACTIVE PROTEIN INCREASED [None]
  - GASTROINTESTINAL OBSTRUCTION [None]
  - HEADACHE [None]
  - MUSCLE CRAMP [None]
  - MYALGIA [None]
  - OEDEMA [None]
  - OEDEMA PERIPHERAL [None]
  - RASH PAPULAR [None]
  - VOMITING [None]
  - WHITE BLOOD CELL COUNT INCREASED [None]
